FAERS Safety Report 21721592 (Version 3)
Quarter: 2023Q2

REPORT INFORMATION
  Report Type: Spontaneous
  Country: AR (occurrence: AR)
  Receive Date: 20221213
  Receipt Date: 20230511
  Transmission Date: 20230722
  Serious: Yes (Other)
  Sender: FDA-Public Use
  Company Number: AR-OEPI8P-957

PATIENT

DRUGS (6)
  1. NERLYNX [Suspect]
     Active Substance: NERATINIB
     Indication: Breast cancer
     Dosage: DAILY DOSE: 240 MG STARTED TREATMENT WITH NERLYNX (NERATINIB) ON 19. NOV 2022. ON MONDAY 28. NOV 202
     Route: 048
     Dates: start: 20221119, end: 20221128
  2. NERLYNX [Suspect]
     Active Substance: NERATINIB
     Dosage: TREATMENT WAS INTERRUPTED SINCE LAST WEEK (SHE DID NOT REMEMBER THE EXACT DATE)
     Route: 048
  3. NERLYNX [Suspect]
     Active Substance: NERATINIB
     Dosage: NUMBER OF UNITS IN INTERVAL: 6 CAPSULES A DAY
     Route: 048
     Dates: start: 20230426
  4. ANASTROZOLE [Concomitant]
     Active Substance: ANASTROZOLE
     Indication: Product used for unknown indication
     Dosage: DAILY DOSE: 1 MG
  5. LEVOTHYROXINE [Concomitant]
     Active Substance: LEVOTHYROXINE
     Indication: Product used for unknown indication
     Dosage: DAILY DOSE: 75 MG
  6. LOPERAMIDE [Concomitant]
     Active Substance: LOPERAMIDE
     Indication: Product used for unknown indication
     Dosage: UNK

REACTIONS (5)
  - Diarrhoea [Unknown]
  - Abdominal infection [Unknown]
  - Hypophagia [Unknown]
  - Vomiting [Unknown]
  - Dehydration [Unknown]

NARRATIVE: CASE EVENT DATE: 20221128
